FAERS Safety Report 8437010-3 (Version None)
Quarter: 2012Q2

REPORT INFORMATION
  Report Type: 
  Country: None (occurrence: None)
  Receive Date: 20120614
  Receipt Date: 20120106
  Transmission Date: 20120825
  Serious: No
  Sender: FDA-Public Use
  Company Number: US-AMGEN-USASP2011068829

PATIENT
  Age: 46 Year
  Sex: Male
  Weight: 71.202 kg

DRUGS (3)
  1. ARANESP [Suspect]
     Indication: RENAL FAILURE CHRONIC
     Dosage: 200 MUG, Q2WK
     Dates: start: 20111205
  2. CELLCEPT [Concomitant]
     Dosage: UNK
     Dates: start: 20080101
  3. PROGRAF [Concomitant]
     Dosage: UNK
     Dates: start: 20080101

REACTIONS (1)
  - INJECTION SITE PAIN [None]
